FAERS Safety Report 10379610 (Version 2)
Quarter: 2014Q3

REPORT INFORMATION
  Report Type: Spontaneous
  Country: FI (occurrence: FI)
  Receive Date: 20140812
  Receipt Date: 20140903
  Transmission Date: 20150326
  Serious: Yes (Hospitalization, Other)
  Sender: FDA-Public Use
  Company Number: PHHY2014FI097932

PATIENT
  Age: 57 Year
  Sex: Female

DRUGS (7)
  1. LEPONEX [Suspect]
     Active Substance: CLOZAPINE
     Dosage: 300 MG, PER DAY (IN THE EVENING)
     Dates: end: 20140806
  2. LORAZEPAM. [Concomitant]
     Active Substance: LORAZEPAM
     Indication: SCHIZOAFFECTIVE DISORDER
     Dosage: 4 MG, DAILY (WHEN NEEDED)
  3. LEPONEX [Suspect]
     Active Substance: CLOZAPINE
     Indication: SCHIZOAFFECTIVE DISORDER
     Dosage: UKN
     Dates: start: 2014
  4. TRIPTYL [Concomitant]
     Indication: SCHIZOAFFECTIVE DISORDER
     Dosage: 25 MG, DAILY
  5. LEPONEX [Suspect]
     Active Substance: CLOZAPINE
     Indication: OFF LABEL USE
     Dosage: 400 MG PER DAY
     Dates: start: 2014
  6. LEPONEX [Suspect]
     Active Substance: CLOZAPINE
     Indication: PSYCHOTIC DISORDER
     Dosage: DOSE WAS REDUCED TO HALF
  7. DEPRAKINE [Concomitant]
     Active Substance: VALPROIC ACID
     Indication: SCHIZOAFFECTIVE DISORDER
     Dosage: 1200 MG, DAILY

REACTIONS (6)
  - Pneumonia [Recovered/Resolved]
  - Constipation [Unknown]
  - Bone marrow failure [Recovering/Resolving]
  - White blood cell count decreased [Recovering/Resolving]
  - Neutrophil count decreased [Recovering/Resolving]
  - Off label use [Recovered/Resolved]

NARRATIVE: CASE EVENT DATE: 2014
